FAERS Safety Report 5588228-9 (Version None)
Quarter: 2008Q1

REPORT INFORMATION
  Report Type: 
  Country: None (occurrence: None)
  Receive Date: 20080108
  Receipt Date: 20071224
  Transmission Date: 20080703
  Serious: Yes (Hospitalization)
  Sender: FDA-Public Use
  Company Number: ADE2007-0093

PATIENT
  Age: 41 Year
  Sex: Female
  Weight: 68 kg

DRUGS (1)
  1. CIPROFLOXACIN HCL [Suspect]
     Indication: URINARY TRACT INFECTION
     Dosage: 500 MG - BID
     Dates: start: 20070110, end: 20070114

REACTIONS (11)
  - ABASIA [None]
  - ARTHRITIS REACTIVE [None]
  - BACK PAIN [None]
  - BLINDNESS [None]
  - DRUG HYPERSENSITIVITY [None]
  - EYE SWELLING [None]
  - KIDNEY INFECTION [None]
  - OCULAR HYPERAEMIA [None]
  - OEDEMA PERIPHERAL [None]
  - OSTEITIS [None]
  - PAIN IN EXTREMITY [None]
